FAERS Safety Report 6516012-8 (Version None)
Quarter: 2009Q4

REPORT INFORMATION
  Report Type: 
  Country: None (occurrence: None)
  Receive Date: 20091223
  Receipt Date: 20090930
  Transmission Date: 20100525
  Serious: No
  Sender: FDA-Public Use
  Company Number: US-ABBOTT-09P-163-0600425-00

PATIENT
  Sex: Male
  Weight: 74.91 kg

DRUGS (6)
  1. LUPRON DEPOT [Suspect]
     Indication: PROSTATE CANCER
     Route: 050
     Dates: start: 20090701
  2. LUPRON DEPOT [Suspect]
  3. SALSALATE [Concomitant]
     Indication: ANTIINFLAMMATORY THERAPY
  4. OMEPRAZOLE [Concomitant]
     Indication: GASTROOESOPHAGEAL REFLUX DISEASE
  5. MULTIVITAMIN [Concomitant]
     Indication: MACULAR DEGENERATION
  6. VITAMIN D WITH CALCIUM [Concomitant]
     Indication: PROSTATE CANCER

REACTIONS (4)
  - ASTHENIA [None]
  - DIZZINESS [None]
  - INCREASED APPETITE [None]
  - WEIGHT INCREASED [None]
